FAERS Safety Report 9784170 (Version 1)
Quarter: 2013Q4

REPORT INFORMATION
  Report Type: Spontaneous
  Country: GB (occurrence: GB)
  Receive Date: 20131226
  Receipt Date: 20131226
  Transmission Date: 20140711
  Serious: Yes (Hospitalization, Disabling)
  Sender: FDA-Public Use
  Company Number: GB-PFIZER INC-2013365819

PATIENT
  Age: 68 Year
  Sex: 0

DRUGS (2)
  1. DOXYCYCLINE MONOHYDRATE [Suspect]
     Route: 048
     Dates: start: 20110118, end: 20110122
  2. RANITIDINE [Suspect]
     Route: 048

REACTIONS (1)
  - Clostridium difficile infection [Recovered/Resolved]
